FAERS Safety Report 5940916-8 (Version None)
Quarter: 2008Q4

REPORT INFORMATION
  Report Type: 
  Country: None (occurrence: None)
  Receive Date: 20081031
  Receipt Date: 20070808
  Transmission Date: 20090506
  Serious: No
  Sender: FDA-Public Use
  Company Number: 2007-162667-NL

PATIENT
  Age: 55 Year
  Sex: Male

DRUGS (2)
  1. MIRTAZAPINE [Suspect]
     Indication: DEPRESSION
     Dosage: DF
     Dates: start: 20070219, end: 20070221
  2. VENLAFAXINE HYDROCHLORIDE [Concomitant]

REACTIONS (1)
  - ATRIOVENTRICULAR BLOCK SECOND DEGREE [None]
